FAERS Safety Report 12175084 (Version 1)
Quarter: 2016Q1

REPORT INFORMATION
  Report Type: Spontaneous
  Country: US (occurrence: US)
  Receive Date: 20160314
  Receipt Date: 20160314
  Transmission Date: 20160526
  Serious: Yes (Other)
  Sender: FDA-Public Use
  Company Number: US-ENDO PHARMACEUTICALS INC.-2016-000174

PATIENT
  Age: 59 Year
  Sex: Male
  Weight: 108.96 kg

DRUGS (4)
  1. AVEED [Suspect]
     Active Substance: TESTOSTERONE UNDECANOATE
     Indication: BLOOD TESTOSTERONE DECREASED
     Dosage: FIRST CYCLE
     Route: 030
     Dates: start: 20150817, end: 20150817
  2. LISINOPRIL. [Concomitant]
     Active Substance: LISINOPRIL
     Indication: HYPERTENSION
     Route: 048
     Dates: start: 1995
  3. AVEED [Suspect]
     Active Substance: TESTOSTERONE UNDECANOATE
     Dosage: SECOND CYCLE
     Route: 030
     Dates: start: 20150914, end: 20150914
  4. NUCYNTA ER [Concomitant]
     Active Substance: TAPENTADOL HYDROCHLORIDE
     Indication: PAIN
     Route: 048

REACTIONS (1)
  - Prostatic specific antigen increased [Recovered/Resolved]

NARRATIVE: CASE EVENT DATE: 201511
